FAERS Safety Report 23514501 (Version 1)
Quarter: 2024Q1

REPORT INFORMATION
  Report Type: Spontaneous
  Country: US (occurrence: US)
  Receive Date: 20240212
  Receipt Date: 20240212
  Transmission Date: 20240410
  Serious: No
  Sender: FDA-Public Use
  Company Number: US-PFIZER INC-2020407370

PATIENT
  Age: 75 Year
  Sex: Female
  Weight: 104.31 kg

DRUGS (5)
  1. EUCRISA [Suspect]
     Active Substance: CRISABOROLE
     Indication: Lichen planus
     Dosage: UNK, 2X/DAY
     Route: 061
  2. EUCRISA [Suspect]
     Active Substance: CRISABOROLE
     Dosage: DAILY
  3. EUCRISA [Suspect]
     Active Substance: CRISABOROLE
     Dosage: 10 MG, 2X/DAY
     Dates: start: 201911
  4. EUCRISA [Suspect]
     Active Substance: CRISABOROLE
     Dosage: UNK, 2X/DAY (APPLY TO AFFECTED AREAS BID PRN)
     Route: 061
  5. EUCRISA [Suspect]
     Active Substance: CRISABOROLE
     Dosage: UNK, 2X/DAY (APPLY TOPICALLY TO TRUNK TWICE A DAY AS NEEDED)
     Route: 061

REACTIONS (3)
  - Off label use [Unknown]
  - Drug effective for unapproved indication [Unknown]
  - Condition aggravated [Unknown]
